FAERS Safety Report 19278776 (Version 12)
Quarter: 2022Q4

REPORT INFORMATION
  Report Type: Report from Study
  Country: US (occurrence: US)
  Receive Date: 20210520
  Receipt Date: 20221109
  Transmission Date: 20230113
  Serious: Yes (Hospitalization)
  Sender: FDA-Public Use
  Company Number: US-GLAXOSMITHKLINE-US2021GSK026803

PATIENT

DRUGS (25)
  1. COBIMETINIB [Suspect]
     Active Substance: COBIMETINIB
     Indication: Ovarian cancer recurrent
     Dosage: 60 MG, QD
     Route: 048
     Dates: start: 20201230, end: 20210119
  2. COBIMETINIB [Suspect]
     Active Substance: COBIMETINIB
     Dosage: 60 MG, QD
     Route: 048
     Dates: start: 20210125
  3. COBIMETINIB [Suspect]
     Active Substance: COBIMETINIB
     Dosage: 40 MG, QD
     Route: 048
     Dates: start: 20210506
  4. NIRAPARIB [Suspect]
     Active Substance: NIRAPARIB
     Indication: Ovarian cancer recurrent
     Dosage: 200 MG, QD
     Route: 048
     Dates: start: 20201230, end: 20210125
  5. NIRAPARIB [Suspect]
     Active Substance: NIRAPARIB
     Dosage: 200 MG, QD
     Route: 048
     Dates: start: 20210506
  6. ATEZOLIZUMAB [Suspect]
     Active Substance: ATEZOLIZUMAB
     Indication: Ovarian cancer recurrent
     Dosage: 840 MG, Z-EVERY 2 WEEKS
     Route: 041
     Dates: start: 20201230, end: 20201230
  7. ATEZOLIZUMAB [Suspect]
     Active Substance: ATEZOLIZUMAB
     Dosage: 840 MG, Z-EVERY 2 WEEKS
     Route: 041
     Dates: start: 20210115, end: 20210115
  8. ATEZOLIZUMAB [Suspect]
     Active Substance: ATEZOLIZUMAB
     Dosage: 840 MG, Z-EVERY 2 WEEKS
     Route: 041
     Dates: start: 20210423, end: 20210423
  9. SODIUM CHLORIDE [Concomitant]
     Active Substance: SODIUM CHLORIDE
     Indication: Headache
     Dosage: 1000 ML, QD
     Route: 042
     Dates: start: 20210115, end: 20210115
  10. SODIUM CHLORIDE [Concomitant]
     Active Substance: SODIUM CHLORIDE
     Dosage: 1000 ML, QD
     Route: 042
     Dates: start: 20210125, end: 20210125
  11. SODIUM CHLORIDE [Concomitant]
     Active Substance: SODIUM CHLORIDE
     Dosage: 1000 ML, QD
     Route: 042
     Dates: start: 20210217
  12. SODIUM CHLORIDE [Concomitant]
     Active Substance: SODIUM CHLORIDE
     Dosage: 1000 ML, QD
     Route: 042
     Dates: start: 20210326, end: 20210326
  13. BENADRYL [Concomitant]
     Active Substance: DIPHENHYDRAMINE HYDROCHLORIDE
     Indication: Dermatitis acneiform
     Dosage: 25 MG, PRN
     Route: 048
     Dates: start: 20210109
  14. MAGNESIUM SULFATE [Concomitant]
     Active Substance: MAGNESIUM SULFATE
     Indication: Hypomagnesaemia
     Dosage: UNK
     Route: 042
     Dates: start: 20210115, end: 20210115
  15. MAGNESIUM SULFATE [Concomitant]
     Active Substance: MAGNESIUM SULFATE
     Dosage: 4 G, QD
     Route: 048
     Dates: start: 20210215, end: 20210912
  16. MAGNESIUM SULFATE [Concomitant]
     Active Substance: MAGNESIUM SULFATE
     Dosage: 2 G, QD
     Route: 042
     Dates: start: 20210119, end: 20210119
  17. MAGNESIUM SULFATE [Concomitant]
     Active Substance: MAGNESIUM SULFATE
     Dosage: 4 G, PRN
     Route: 042
     Dates: start: 20210119, end: 20210119
  18. MAGNESIUM SULFATE [Concomitant]
     Active Substance: MAGNESIUM SULFATE
     Dosage: UNK UNK, PRN
     Route: 042
     Dates: start: 20210326
  19. HYDROCORTISONE [Concomitant]
     Active Substance: HYDROCORTISONE
     Indication: Dermatitis acneiform
     Dosage: 2.5 %, BID
     Route: 061
     Dates: start: 20210115, end: 20210129
  20. HYDROCORTISONE [Concomitant]
     Active Substance: HYDROCORTISONE
     Dosage: 100 MG, TID
     Route: 042
     Dates: start: 20210627, end: 20210628
  21. MIRALAX [Concomitant]
     Active Substance: POLYETHYLENE GLYCOL 3350
     Indication: Abdominal pain upper
     Dosage: 17 G, PRN
     Route: 048
     Dates: start: 20210110, end: 20210111
  22. MIRALAX [Concomitant]
     Active Substance: POLYETHYLENE GLYCOL 3350
     Indication: Constipation
  23. COMPAZINE [Concomitant]
     Active Substance: PROCHLORPERAZINE MALEATE
     Indication: Nausea
     Dosage: 10 MG, PRN
     Route: 042
     Dates: start: 20210125, end: 20210125
  24. MAGNESIUM + PROTEIN [Concomitant]
     Indication: Product used for unknown indication
     Dosage: UNK
  25. TYLENOL [Concomitant]
     Active Substance: ACETAMINOPHEN
     Indication: Pyrexia
     Dosage: 1000 MG, PRN
     Route: 048
     Dates: start: 20210115, end: 20210118

REACTIONS (2)
  - Pancreatitis [Recovered/Resolved]
  - Subretinal fluid [Recovered/Resolved]

NARRATIVE: CASE EVENT DATE: 20210126
